FAERS Safety Report 10030007 (Version 2)
Quarter: 2014Q1

REPORT INFORMATION
  Report Type: Spontaneous
  Country: US (occurrence: US)
  Receive Date: 20140323
  Receipt Date: 20140323
  Transmission Date: 20141002
  Serious: No
  Sender: FDA-Public Use
  Company Number: US-ALLERGAN-1304771US

PATIENT
  Sex: Female
  Weight: 130 kg

DRUGS (3)
  1. LATISSE 0.03% [Suspect]
     Indication: HYPOTRICHOSIS
     Dosage: 1 GTT, QD EACH EYELASH
     Route: 061
     Dates: start: 201304
  2. ARMOUR THYROID [Concomitant]
     Indication: HYPOTHYROIDISM
     Dosage: UNK UNK, QD
  3. LEVOTHYROXIN [Concomitant]
     Indication: HYPOTHYROIDISM
     Dosage: UNK UNK, QD

REACTIONS (1)
  - Blepharal pigmentation [Not Recovered/Not Resolved]
